FAERS Safety Report 6286589-9 (Version None)
Quarter: 2009Q3

REPORT INFORMATION
  Report Type: 
  Country: None (occurrence: None)
  Receive Date: 20090728
  Receipt Date: 20090722
  Transmission Date: 20100115
  Serious: Yes (Hospitalization, Other)
  Sender: FDA-Public Use
  Company Number: FR-BRISTOL-MYERS SQUIBB COMPANY-14712467

PATIENT
  Age: 56 Year
  Sex: Male
  Weight: 98 kg

DRUGS (11)
  1. AMIKLIN INJ [Suspect]
     Route: 042
     Dates: start: 20090602, end: 20090616
  2. CISPLATIN [Suspect]
     Indication: NEOPLASM MALIGNANT
     Dosage: 1ST COURSE:20APR09TO24APR09
     Route: 042
     Dates: start: 20090420, end: 20090424
  3. CARBOPLATIN [Suspect]
     Dosage: ON DAY 1
     Dates: start: 20090518
  4. TAXOL [Suspect]
     Dosage: ON DAY 1
     Dates: start: 20090518
  5. VANCOMYCIN [Suspect]
     Route: 042
     Dates: start: 20090527, end: 20090622
  6. FLUOROURACIL [Suspect]
     Dates: start: 20090420, end: 20090424
  7. TAXOTERE [Suspect]
     Dates: start: 20090420, end: 20090424
  8. GENTAMICIN [Suspect]
     Dates: start: 20090501
  9. DEPAKENE [Concomitant]
     Dosage: DEPAKINE 500
  10. LEXOMIL [Concomitant]
     Dosage: 1/4 IN THE MORNING
  11. FLECAINIDE ACETATE [Concomitant]

REACTIONS (2)
  - LEUKOCYTOCLASTIC VASCULITIS [None]
  - RENAL FAILURE ACUTE [None]
